FAERS Safety Report 5647336-4 (Version None)
Quarter: 2008Q1

REPORT INFORMATION
  Report Type: 
  Country: None (occurrence: None)
  Receive Date: 20080131
  Receipt Date: 20071101
  Transmission Date: 20080703
  Serious: No
  Sender: FDA-Public Use
  Company Number: 163-21880-07110128

PATIENT
  Age: 59 Year
  Sex: Female

DRUGS (2)
  1. REVLIMID [Suspect]
     Indication: MULTIPLE MYELOMA
     Dosage: 10, 15-25  MG, 1 IN 1 D, ORAL
     Route: 048
     Dates: start: 20060601, end: 20071001
  2. REVLIMID [Suspect]
     Indication: MULTIPLE MYELOMA
     Dosage: 10, 15-25  MG, 1 IN 1 D, ORAL
     Route: 048
     Dates: start: 20071102

REACTIONS (2)
  - SINUS CONGESTION [None]
  - VOMITING [None]
